FAERS Safety Report 10331085 (Version 3)
Quarter: 2014Q3

REPORT INFORMATION
  Report Type: Spontaneous
  Country: DE (occurrence: DE)
  Receive Date: 20140722
  Receipt Date: 20140811
  Transmission Date: 20150326
  Serious: Yes (Hospitalization, Other)
  Sender: FDA-Public Use
  Company Number: DE-JNJFOC-20140712858

PATIENT
  Age: 77 Year
  Sex: Female
  Weight: 80 kg

DRUGS (10)
  1. XARELTO [Suspect]
     Active Substance: RIVAROXABAN
     Indication: ATRIAL FIBRILLATION
     Route: 048
     Dates: start: 20120622, end: 20130723
  2. BELOC-ZOK [Concomitant]
     Active Substance: METOPROLOL SUCCINATE
     Route: 065
  3. CANDESARTAN [Concomitant]
     Active Substance: CANDESARTAN
     Route: 065
  4. LANITOP [Concomitant]
     Active Substance: METILDIGOXIN
     Route: 065
  5. CARMEN [Concomitant]
     Active Substance: LERCANIDIPINE
     Route: 065
  6. XARELTO [Suspect]
     Active Substance: RIVAROXABAN
     Indication: CEREBROVASCULAR ACCIDENT
     Route: 048
     Dates: start: 20120622, end: 20130723
  7. ALLOPURINOL. [Concomitant]
     Active Substance: ALLOPURINOL
     Route: 065
  8. TOREM [Concomitant]
     Active Substance: TORSEMIDE
     Route: 065
  9. MTX [Concomitant]
     Active Substance: METHOTREXATE SODIUM
     Route: 065
  10. VIGANTOLETTEN [Concomitant]
     Active Substance: CHOLECALCIFEROL
     Route: 065

REACTIONS (6)
  - Paraesthesia [Unknown]
  - Transient ischaemic attack [Unknown]
  - Transient global amnesia [Unknown]
  - Drug ineffective [Unknown]
  - Transient ischaemic attack [Recovered/Resolved]
  - Speech disorder [Unknown]

NARRATIVE: CASE EVENT DATE: 201304
